FAERS Safety Report 5844904-1 (Version None)
Quarter: 2008Q3

REPORT INFORMATION
  Report Type: 
  Country: None (occurrence: None)
  Receive Date: 20080813
  Receipt Date: 20080813
  Transmission Date: 20090109
  Serious: Yes (Life-Threatening, Hospitalization)
  Sender: FDA-Public Use
  Company Number: None

PATIENT
  Age: 7 Year
  Sex: Male
  Weight: 29.0302 kg

DRUGS (1)
  1. THIOGUANINE [Suspect]
     Indication: LEUKAEMIA
     Dosage: 60 MG DAILY PO
     Route: 048
     Dates: start: 20070220, end: 20070305

REACTIONS (5)
  - ABDOMINAL DISTENSION [None]
  - EATING DISORDER [None]
  - LIVER INJURY [None]
  - OSTEONECROSIS [None]
  - RENAL INJURY [None]
